FAERS Safety Report 6019732-7 (Version None)
Quarter: 2008Q4

REPORT INFORMATION
  Report Type: 
  Country: None (occurrence: None)
  Receive Date: 20081224
  Receipt Date: 20081212
  Transmission Date: 20090506
  Serious: Yes (Disabling)
  Sender: FDA-Public Use
  Company Number: FR-PFIZER INC-2008154433

PATIENT

DRUGS (4)
  1. NEURONTIN [Suspect]
     Indication: EPILEPSY
     Dosage: FREQUENCY: EVERY DAY;
     Route: 048
  2. SABRIL [Suspect]
     Indication: EPILEPSY
     Dosage: FREQUENCY: EVERY DAY;
     Route: 048
     Dates: start: 19970401, end: 20080401
  3. TRIMETAZIDINE HYDROCHLORIDE [Concomitant]
     Dosage: UNK
     Route: 048
  4. ATENOLOL AND CHLORTHALIDONE [Concomitant]
     Dosage: UNK
     Route: 048

REACTIONS (1)
  - BLINDNESS [None]
